FAERS Safety Report 19991285 (Version 1)
Quarter: 2021Q4

REPORT INFORMATION
  Report Type: Spontaneous
  Country: US (occurrence: US)
  Receive Date: 20211022
  Receipt Date: 20211022
  Transmission Date: 20220303
  Serious: Yes (Hospitalization)
  Sender: FDA-Public Use
  Company Number: None

PATIENT
  Sex: Male

DRUGS (7)
  1. MEKINIST [Suspect]
     Active Substance: TRAMETINIB DIMETHYL SULFOXIDE
     Route: 048
  2. ALPRAZOLAM TAB [Concomitant]
  3. LIDO/PRILOCN CRE [Concomitant]
  4. MORPHINE SUL TAB [Concomitant]
  5. ONDANSETRON TAB [Concomitant]
  6. PROCHLORPER TAB [Concomitant]
  7. TAFINLAR [Concomitant]
     Active Substance: DABRAFENIB MESYLATE

REACTIONS (2)
  - Pyrexia [None]
  - Therapy interrupted [None]
